FAERS Safety Report 8069292-4 (Version None)
Quarter: 2012Q1

REPORT INFORMATION
  Report Type: 
  Country: None (occurrence: None)
  Receive Date: 20120125
  Receipt Date: 20120119
  Transmission Date: 20120608
  Serious: Yes (Death, Hospitalization)
  Sender: FDA-Public Use
  Company Number: FR-JNJFOC-20120107819

PATIENT
  Sex: Female

DRUGS (3)
  1. LEVOFLOXACIN [Suspect]
     Indication: BRONCHITIS
     Dosage: 0.5 TABLET DAILY
     Route: 048
     Dates: start: 20111012, end: 20111124
  2. AMOXICILLIN [Concomitant]
     Indication: PRODUCT USED FOR UNKNOWN INDICATION
     Route: 065
     Dates: start: 20110925, end: 20111004
  3. LEVOFLOXACIN [Suspect]
     Dosage: 0.5 TABLET DAILY
     Route: 048
     Dates: start: 20111005, end: 20111011

REACTIONS (5)
  - NEUTROPENIA [None]
  - HYPERTHERMIA [None]
  - WRONG TECHNIQUE IN DRUG USAGE PROCESS [None]
  - WHITE BLOOD CELL COUNT DECREASED [None]
  - DEATH [None]
